FAERS Safety Report 8257703-0 (Version None)
Quarter: 2012Q2

REPORT INFORMATION
  Report Type: 
  Country: None (occurrence: None)
  Receive Date: 20120403
  Receipt Date: 20120321
  Transmission Date: 20120825
  Serious: Yes (Disabling)
  Sender: FDA-Public Use
  Company Number: FR-MYLANLABS-2012S1002182

PATIENT
  Age: 55 Year
  Sex: Female
  Weight: 76 kg

DRUGS (4)
  1. ATENOLOL [Suspect]
  2. ATENOLOL [Concomitant]
     Indication: MARFAN'S SYNDROME
     Route: 048
     Dates: start: 19950101
  3. TRAMADOL HCL [Suspect]
     Indication: PAIN
     Dates: start: 19950101
  4. MIANSERINE [Suspect]

REACTIONS (1)
  - SLEEP APNOEA SYNDROME [None]
